FAERS Safety Report 4636969-X (Version None)
Quarter: 2005Q2

REPORT INFORMATION
  Report Type: 
  Country: None (occurrence: None)
  Receive Date: 20050415
  Receipt Date: 20021125
  Transmission Date: 20051028
  Serious: Yes (Hospitalization)
  Sender: FDA-Public Use
  Company Number: C-04-0017

PATIENT
  Age: 8 Year
  Sex: Male

DRUGS (2)
  1. MYPHETANE DC [Suspect]
     Indication: COUGH
     Dosage: 10 CC, TWICE PER DAY, ORAL
     Route: 048
     Dates: start: 19980220, end: 19980304
  2. MYPHETANE DC [Suspect]
     Indication: NASOPHARYNGITIS
     Dosage: 10 CC, TWICE PER DAY, ORAL
     Route: 048
     Dates: start: 19980220, end: 19980304

REACTIONS (1)
  - INJURY [None]
